FAERS Safety Report 25412384 (Version 1)
Quarter: 2025Q2

REPORT INFORMATION
  Report Type: Spontaneous
  Country: US (occurrence: None)
  Receive Date: 20250606
  Receipt Date: 20250606
  Transmission Date: 20250716
  Serious: Yes (Other)
  Sender: FDA-CTU
  Company Number: None

PATIENT
  Sex: Female

DRUGS (3)
  1. DIMETHYL FUMARATE [Suspect]
     Active Substance: DIMETHYL FUMARATE
     Indication: Multiple sclerosis
     Dates: start: 20201016
  2. AMANTADINE [Concomitant]
     Active Substance: AMANTADINE
  3. NYSTATIN [Concomitant]
     Active Substance: NYSTATIN

REACTIONS (1)
  - Chemotherapy [None]
